FAERS Safety Report 7995686-9 (Version None)
Quarter: 2011Q4

REPORT INFORMATION
  Report Type: 
  Country: None (occurrence: None)
  Receive Date: 20111220
  Receipt Date: 20111214
  Transmission Date: 20120403
  Serious: Yes (Other)
  Sender: FDA-Public Use
  Company Number: AT-ABBOTT-11P-009-0883310-00

PATIENT
  Age: 31 Year
  Sex: Female

DRUGS (2)
  1. HUMIRA [Suspect]
     Indication: CROHN'S DISEASE
     Route: 058
     Dates: start: 20090101
  2. HUMIRA [Suspect]
     Route: 058
     Dates: end: 20100101

REACTIONS (6)
  - FISTULA [None]
  - ABSCESS [None]
  - DIARRHOEA [None]
  - WEIGHT DECREASED [None]
  - ANOGENITAL WARTS [None]
  - INJECTION SITE REACTION [None]
